FAERS Safety Report 7015746-9 (Version None)
Quarter: 2010Q3

REPORT INFORMATION
  Report Type: 
  Country: None (occurrence: None)
  Receive Date: 20100927
  Receipt Date: 20100125
  Transmission Date: 20110219
  Serious: No
  Sender: FDA-Public Use
  Company Number: US-ASTRAZENECA-2010SE03356

PATIENT
  Age: 61 Year
  Sex: Female

DRUGS (3)
  1. ARIMIDEX [Suspect]
     Indication: BREAST CANCER
     Route: 048
     Dates: start: 20090901
  2. MULTI-VITAMINS [Concomitant]
  3. FISH OIL [Concomitant]

REACTIONS (2)
  - ABDOMINAL DISCOMFORT [None]
  - HOT FLUSH [None]
